FAERS Safety Report 5101291-4 (Version None)
Quarter: 2006Q3

REPORT INFORMATION
  Report Type: 
  Country: None (occurrence: None)
  Receive Date: 20060911
  Receipt Date: 19990219
  Transmission Date: 20061208
  Serious: Yes (Death, Life-Threatening)
  Sender: FDA-Public Use
  Company Number: US-AVENTIS-199910728HMRI

PATIENT
  Sex: Male
  Weight: 50 kg

DRUGS (1)
  1. ANZEMET [Suspect]
     Indication: PROPHYLAXIS OF NAUSEA AND VOMITING
     Route: 042
     Dates: start: 19990219, end: 19990220

REACTIONS (10)
  - APNOEA [None]
  - ATRIOVENTRICULAR BLOCK [None]
  - BRADYCARDIA [None]
  - CARDIAC ARREST [None]
  - CARDIO-RESPIRATORY ARREST [None]
  - COMA [None]
  - DRUG TOXICITY [None]
  - DYSPNOEA [None]
  - LOSS OF CONSCIOUSNESS [None]
  - PARAESTHESIA [None]
